FAERS Safety Report 6934542-1 (Version None)
Quarter: 2010Q3

REPORT INFORMATION
  Report Type: 
  Country: None (occurrence: None)
  Receive Date: 20100820
  Receipt Date: 20100709
  Transmission Date: 20110219
  Serious: Yes (Death, Other)
  Sender: FDA-Public Use
  Company Number: US-BAXTER-2010BH003623

PATIENT
  Age: 82 Year
  Sex: Male

DRUGS (12)
  1. HEPARIN SODIUM INJECTION [Suspect]
     Indication: THROMBOSIS PROPHYLAXIS
     Route: 058
     Dates: start: 10080516, end: 20080523
  2. HEPARIN SODIUM INJECTION [Suspect]
     Route: 058
     Dates: start: 20080523, end: 20080528
  3. HYTRIN [Concomitant]
     Indication: PRODUCT USED FOR UNKNOWN INDICATION
     Route: 065
  4. XANAX [Concomitant]
     Indication: PRODUCT USED FOR UNKNOWN INDICATION
     Route: 065
  5. NEXIUM [Concomitant]
     Indication: PRODUCT USED FOR UNKNOWN INDICATION
     Route: 065
  6. NORVASC [Concomitant]
     Indication: PRODUCT USED FOR UNKNOWN INDICATION
     Route: 065
  7. INSULIN [Concomitant]
     Indication: PRODUCT USED FOR UNKNOWN INDICATION
     Route: 065
  8. LEVALBUTEROL HYDROCHLORIDE [Concomitant]
     Indication: PRODUCT USED FOR UNKNOWN INDICATION
     Route: 065
  9. AMLODIPINE [Concomitant]
     Indication: PRODUCT USED FOR UNKNOWN INDICATION
     Route: 065
  10. MEROPENEM [Concomitant]
     Indication: PRODUCT USED FOR UNKNOWN INDICATION
     Route: 065
  11. SODIUM CHLORIDE 0.9% IN PLASTIC CONTAINER [Concomitant]
     Indication: PRODUCT USED FOR UNKNOWN INDICATION
     Route: 065
  12. CEFEPIME [Concomitant]
     Indication: PRODUCT USED FOR UNKNOWN INDICATION
     Route: 065

REACTIONS (12)
  - BLOOD PRESSURE FLUCTUATION [None]
  - CEREBROVASCULAR ACCIDENT [None]
  - EMPHYSEMA [None]
  - ERYTHEMA [None]
  - HEMIPLEGIA [None]
  - HEPARIN-INDUCED THROMBOCYTOPENIA [None]
  - HYPERHIDROSIS [None]
  - PNEUMONIA [None]
  - PNEUMOTHORAX [None]
  - RESPIRATORY DISTRESS [None]
  - SEPSIS [None]
  - THROMBOSIS [None]
